FAERS Safety Report 14989002 (Version 5)
Quarter: 2019Q1

REPORT INFORMATION
  Report Type: Spontaneous
  Country: CA (occurrence: CA)
  Receive Date: 20180608
  Receipt Date: 20190108
  Transmission Date: 20190417
  Serious: Yes (Other)
  Sender: FDA-Public Use
  Company Number: CA-CELLTRION INC.-2018CA020492

PATIENT

DRUGS (6)
  1. INFLECTRA [Suspect]
     Active Substance: INFLIXIMAB-DYYB
     Dosage: 10 MG/ KG (1350 MG), CYCLIC (EVERY 2,6, THEN EVERY 8 WEEKS)
     Route: 042
     Dates: start: 20180531
  2. INFLECTRA [Suspect]
     Active Substance: INFLIXIMAB-DYYB
     Dosage: 10 MG/ KG (1350 MG), CYCLIC (EVERY 2,6, THEN EVERY 8 WEEKS)
     Route: 042
     Dates: start: 20180823
  3. INFLECTRA [Suspect]
     Active Substance: INFLIXIMAB-DYYB
     Dosage: 10 MG/ KG (1350 MG), CYCLIC (EVERY 2,6, THEN EVERY 8 WEEKS)
     Route: 042
     Dates: start: 20181019
  4. METFORMIN [Concomitant]
     Active Substance: METFORMIN HYDROCHLORIDE
     Dosage: UNK
  5. INFLECTRA [Suspect]
     Active Substance: INFLIXIMAB-DYYB
     Indication: COLITIS ULCERATIVE
     Dosage: 10 MG/ KG (1350 MG), CYCLIC (EVERY 2,6, THEN EVERY 8 WEEKS)
     Route: 042
     Dates: start: 20180518
  6. INFLECTRA [Suspect]
     Active Substance: INFLIXIMAB-DYYB
     Dosage: 10 MG/ KG (1350 MG), CYCLIC (EVERY 2,6, THEN EVERY 8 WEEKS)
     Route: 042
     Dates: start: 20180531

REACTIONS (4)
  - Product use issue [Unknown]
  - Nasal congestion [Unknown]
  - Haematochezia [Unknown]
  - Blood pressure fluctuation [Unknown]

NARRATIVE: CASE EVENT DATE: 20180531
